FAERS Safety Report 6673407-X (Version None)
Quarter: 2010Q2

REPORT INFORMATION
  Report Type: 
  Country: None (occurrence: None)
  Receive Date: 20100408
  Receipt Date: 20100324
  Transmission Date: 20101027
  Serious: Yes (Other)
  Sender: FDA-Public Use
  Company Number: CA-PFIZER INC-2010037742

PATIENT
  Age: 61 Year
  Sex: Male

DRUGS (4)
  1. LIPITOR [Suspect]
     Dosage: 40 MG, UNK
     Dates: start: 20000101, end: 20100201
  2. CARVEDILOL [Concomitant]
     Dosage: UNK
  3. LORAZEPAM [Concomitant]
     Dosage: UNK
  4. FUROSEMIDE [Concomitant]
     Dosage: UNK

REACTIONS (6)
  - CONSTIPATION [None]
  - DIARRHOEA [None]
  - GASTRIC DISORDER [None]
  - IRRITABLE BOWEL SYNDROME [None]
  - MUSCLE ATROPHY [None]
  - PAIN IN EXTREMITY [None]
